FAERS Safety Report 13657774 (Version 2)
Quarter: 2017Q4

REPORT INFORMATION
  Report Type: Spontaneous
  Country: JP (occurrence: JP)
  Receive Date: 20170615
  Receipt Date: 20171030
  Transmission Date: 20180320
  Serious: Yes (Death, Life-Threatening, Hospitalization, Other)
  Sender: FDA-Public Use
  Company Number: JP-AMGEN-JPNSP2017071109

PATIENT
  Age: 8 Decade
  Sex: Male

DRUGS (8)
  1. IRINOTECAN HYDROCHLORIDE. [Suspect]
     Active Substance: IRINOTECAN HYDROCHLORIDE
     Dosage: UNK
     Route: 041
     Dates: start: 20170410
  2. FLUOROURACIL. [Suspect]
     Active Substance: FLUOROURACIL
     Dosage: UNK
     Route: 041
     Dates: start: 20170410
  3. CALCIUM LEVOFOLINATE [Suspect]
     Active Substance: LEVOLEUCOVORIN CALCIUM
     Indication: COLORECTAL CANCER RECURRENT
     Dosage: UNK
     Route: 041
     Dates: start: 20170314, end: 20170314
  4. VECTIBIX [Suspect]
     Active Substance: PANITUMUMAB
     Indication: COLON CANCER
     Dosage: 6 MG/KG, Q2WEEKS
     Route: 041
     Dates: start: 20170314, end: 20170314
  5. CALCIUM LEVOFOLINATE [Suspect]
     Active Substance: LEVOLEUCOVORIN CALCIUM
     Dosage: UNK
     Route: 041
     Dates: start: 20170410
  6. FLUOROURACIL. [Suspect]
     Active Substance: FLUOROURACIL
     Indication: COLORECTAL CANCER RECURRENT
     Dosage: UNK
     Route: 041
     Dates: start: 20170314, end: 20170314
  7. VECTIBIX [Suspect]
     Active Substance: PANITUMUMAB
     Dosage: 6 MG/KG, Q2WEEKS
     Route: 041
     Dates: start: 20170410
  8. IRINOTECAN HYDROCHLORIDE. [Suspect]
     Active Substance: IRINOTECAN HYDROCHLORIDE
     Indication: COLORECTAL CANCER RECURRENT
     Dosage: UNK
     Route: 041
     Dates: start: 20170314, end: 20170314

REACTIONS (2)
  - Interstitial lung disease [Fatal]
  - Platelet count decreased [Recovered/Resolved]

NARRATIVE: CASE EVENT DATE: 201703
